FAERS Safety Report 10084002 (Version 3)
Quarter: 2014Q3

REPORT INFORMATION
  Report Type: Spontaneous
  Country: CA (occurrence: CA)
  Receive Date: 20140417
  Receipt Date: 20140707
  Transmission Date: 20150326
  Serious: Yes (Hospitalization, Other)
  Sender: FDA-Public Use
  Company Number: CA-JNJFOC-20140408409

PATIENT
  Sex: Female

DRUGS (6)
  1. MOTRIN [Suspect]
     Active Substance: IBUPROFEN
     Indication: ABDOMINAL PAIN
     Dosage: 1 OR 2 TABLETS AS NEEDED, OVER THE LAST 6 YEARS, ONCE OR TWICE A WEEK OR EVERY 2 WEEKS(AS ON LABEL)
     Route: 048
     Dates: start: 2007, end: 20130225
  2. MOTRIN [Suspect]
     Active Substance: IBUPROFEN
     Indication: HEADACHE
     Dosage: 1 OR 2 TABLETS AS NEEDED, OVER THE LAST 6 YEARS, ONCE OR TWICE A WEEK OR EVERY 2 WEEKS(AS ON LABEL)
     Route: 048
     Dates: start: 2007, end: 20130225
  3. TECTA [Concomitant]
     Active Substance: PANTOPRAZOLE MAGNESIUM
     Indication: ULCER
     Route: 065
     Dates: start: 201309
  4. PREMARIN [Concomitant]
     Active Substance: ESTROGENS, CONJUGATED
     Indication: MENOPAUSE
     Route: 065
  5. MOTRIN [Suspect]
     Active Substance: IBUPROFEN
     Indication: MYALGIA
     Dosage: 1 OR 2 TABLETS AS NEEDED, OVER THE LAST 6 YEARS, ONCE OR TWICE A WEEK OR EVERY 2 WEEKS(AS ON LABEL)
     Route: 048
     Dates: start: 2007, end: 20130225
  6. MOTRIN [Suspect]
     Active Substance: IBUPROFEN
     Indication: PYREXIA
     Dosage: 1 OR 2 TABLETS AS NEEDED, OVER THE LAST 6 YEARS, ONCE OR TWICE A WEEK OR EVERY 2 WEEKS(AS ON LABEL)
     Route: 048
     Dates: start: 2007, end: 20130225

REACTIONS (1)
  - Gastric cancer [Recovering/Resolving]
